FAERS Safety Report 22045667 (Version 2)
Quarter: 2023Q2

REPORT INFORMATION
  Report Type: Spontaneous
  Country: JP (occurrence: JP)
  Receive Date: 20230228
  Receipt Date: 20230411
  Transmission Date: 20230722
  Serious: Yes (Other)
  Sender: FDA-Public Use
  Company Number: JP-CHUGAI-2023004006

PATIENT
  Age: 61 Year
  Sex: Female
  Weight: 50 kg

DRUGS (2)
  1. KADCYLA [Suspect]
     Active Substance: ADO-TRASTUZUMAB EMTANSINE
     Indication: Breast cancer
     Route: 041
  2. ALOXI [Concomitant]
     Active Substance: PALONOSETRON HYDROCHLORIDE
     Route: 041

REACTIONS (1)
  - Graves^ disease [Recovering/Resolving]

NARRATIVE: CASE EVENT DATE: 20230201
